FAERS Safety Report 6255002-X (Version None)
Quarter: 2009Q3

REPORT INFORMATION
  Report Type: 
  Country: None (occurrence: None)
  Receive Date: 20090702
  Receipt Date: 20090625
  Transmission Date: 20100115
  Serious: Yes (Other)
  Sender: FDA-Public Use
  Company Number: US-ELI_LILLY_AND_COMPANY-US200906006073

PATIENT
  Sex: Male

DRUGS (7)
  1. HUMALOG [Suspect]
     Indication: TYPE 1 DIABETES MELLITUS
     Dosage: UNK, UNK
     Dates: start: 20090601
  2. HUMULIN N [Suspect]
     Indication: TYPE 1 DIABETES MELLITUS
     Dates: end: 20000101
  3. HUMULIN N [Suspect]
     Dates: start: 20000101, end: 20090625
  4. HUMULIN R [Suspect]
     Indication: TYPE 1 DIABETES MELLITUS
     Dates: end: 20000101
  5. HUMULIN R [Suspect]
     Dates: start: 20000101, end: 20090625
  6. HUMALOG [Suspect]
     Dates: start: 20000101, end: 20000101
  7. LANTUS [Concomitant]

REACTIONS (5)
  - AMNESIA [None]
  - BLOOD GLUCOSE INCREASED [None]
  - DEAFNESS [None]
  - DRUG DISPENSING ERROR [None]
  - DRUG INEFFECTIVE [None]
